FAERS Safety Report 5332474-6 (Version None)
Quarter: 2007Q2

REPORT INFORMATION
  Report Type: 
  Country: None (occurrence: None)
  Receive Date: 20070523
  Receipt Date: 20070516
  Transmission Date: 20071010
  Serious: Yes (Other)
  Sender: FDA-Public Use
  Company Number: B0469746A

PATIENT
  Age: 72 Year
  Sex: Female

DRUGS (7)
  1. PANADOL RAPID [Suspect]
     Indication: PAIN
     Route: 048
     Dates: start: 20070428, end: 20070501
  2. RENITEC [Concomitant]
     Dosage: 20MG PER DAY
  3. NORVASC [Concomitant]
     Dosage: 10MG PER DAY
  4. CARTIA XT [Concomitant]
     Dosage: 1UNIT PER DAY
  5. OROXINE [Concomitant]
     Dosage: 100MG PER DAY
  6. PARIET [Concomitant]
     Dosage: 20MG PER DAY
  7. PANAMAX [Concomitant]

REACTIONS (5)
  - ERYTHEMA [None]
  - FAECAL INCONTINENCE [None]
  - FATIGUE [None]
  - PRURITUS [None]
  - PRURITUS GENERALISED [None]
